FAERS Safety Report 4390915-5 (Version None)
Quarter: 2004Q2

REPORT INFORMATION
  Report Type: 
  Country: None (occurrence: None)
  Receive Date: 20040630
  Receipt Date: 20040617
  Transmission Date: 20050107
  Serious: Yes (Other)
  Sender: FDA-Public Use
  Company Number: 2004041663

PATIENT
  Sex: Female

DRUGS (1)
  1. LIPITOR [Suspect]
     Indication: ILL-DEFINED DISORDER
     Dosage: 20 MG 910 MG, 2 IN 1 D), ORAL
     Route: 048

REACTIONS (5)
  - BALANCE DISORDER [None]
  - DIFFICULTY IN WALKING [None]
  - DIZZINESS [None]
  - OSTEOARTHRITIS [None]
  - PAIN [None]
